FAERS Safety Report 5014742-0 (Version None)
Quarter: 2006Q2

REPORT INFORMATION
  Report Type: 
  Country: None (occurrence: None)
  Receive Date: 20060531
  Receipt Date: 20060519
  Transmission Date: 20061013
  Serious: Yes (Death)
  Sender: FDA-Public Use
  Company Number: NL-GLAXOSMITHKLINE-B0425548A

PATIENT
  Age: 91 Year

DRUGS (5)
  1. ALKERAN [Suspect]
     Indication: SARCOMA
     Route: 050
  2. TNF [Suspect]
     Indication: SARCOMA
     Route: 065
  3. SALINE SOLUTION [Concomitant]
     Indication: DRUG USE FOR UNKNOWN INDICATION
     Route: 065
  4. DEXTRAN 70 [Concomitant]
     Indication: DRUG USE FOR UNKNOWN INDICATION
     Route: 065
  5. GENERAL ANAESTHESIA [Concomitant]
     Route: 065

REACTIONS (1)
  - MESENTERIC ARTERY THROMBOSIS [None]
